FAERS Safety Report 9772804 (Version 1)
Quarter: 2013Q4

REPORT INFORMATION
  Report Type: Spontaneous
  Country: US (occurrence: None)
  Receive Date: 20131218
  Receipt Date: 20131218
  Transmission Date: 20140711
  Serious: No
  Sender: FDA-Public Use
  Company Number: None

PATIENT
  Age: 61 Year
  Sex: Male

DRUGS (1)
  1. AMITRIPTYLINE [Suspect]
     Indication: CIRCADIAN RHYTHM SLEEP DISORDER
     Dosage: 2 PILLS, TWICE A NIGHT
     Route: 048

REACTIONS (1)
  - Drug ineffective [None]
